FAERS Safety Report 22090442 (Version 2)
Quarter: 2023Q1

REPORT INFORMATION
  Report Type: Spontaneous
  Country: US (occurrence: US)
  Receive Date: 20230313
  Receipt Date: 20230315
  Transmission Date: 20230418
  Serious: No
  Sender: FDA-Public Use
  Company Number: US-ALKERMES INC.-ALK-2023-001034

PATIENT
  Sex: Female

DRUGS (1)
  1. VIVITROL [Suspect]
     Active Substance: NALTREXONE
     Indication: Alcoholism
     Dosage: 380 MILLIGRAM, QMO
     Route: 030
     Dates: start: 20230301

REACTIONS (5)
  - Injection site reaction [Unknown]
  - Injection site erythema [Unknown]
  - Injection site mass [Unknown]
  - Injection site warmth [Unknown]
  - Injection site urticaria [Unknown]
